FAERS Safety Report 23792636 (Version 1)
Quarter: 2024Q2

REPORT INFORMATION
  Report Type: Spontaneous
  Country: US (occurrence: US)
  Receive Date: 20240429
  Receipt Date: 20240429
  Transmission Date: 20240716
  Serious: No
  Sender: FDA-Public Use
  Company Number: US-SUN PHARMACEUTICAL INDUSTRIES LTD-2023R1-406996

PATIENT
  Sex: Female

DRUGS (1)
  1. METHYLPHENIDATE [Suspect]
     Active Substance: METHYLPHENIDATE
     Indication: Attention deficit hyperactivity disorder
     Dosage: UNK, TID
     Route: 065
     Dates: start: 2021

REACTIONS (5)
  - Recalled product administered [Unknown]
  - Chest pain [Unknown]
  - Heart rate increased [Unknown]
  - Abdominal pain upper [Unknown]
  - Malaise [Unknown]
